FAERS Safety Report 5469379-6 (Version None)
Quarter: 2007Q3

REPORT INFORMATION
  Report Type: 
  Country: None (occurrence: None)
  Receive Date: 20070927
  Receipt Date: 20070820
  Transmission Date: 20080115
  Serious: Yes (Hospitalization)
  Sender: FDA-Public Use
  Company Number: FR-BRISTOL-MYERS SQUIBB COMPANY-13921135

PATIENT
  Age: 65 Year
  Sex: Male

DRUGS (5)
  1. ENDOXAN [Suspect]
     Indication: NON-HODGKIN'S LYMPHOMA
     Dates: start: 20021201, end: 20030301
  2. RITUXAN [Suspect]
     Indication: NON-HODGKIN'S LYMPHOMA
     Dates: start: 20021201, end: 20030301
  3. ADRIAMYCIN PFS [Suspect]
     Indication: NON-HODGKIN'S LYMPHOMA
     Dates: start: 20021201, end: 20030301
  4. VINCRISTINE [Suspect]
     Indication: NON-HODGKIN'S LYMPHOMA
     Dates: start: 20021201, end: 20030301
  5. CORTANCYL [Suspect]
     Indication: NON-HODGKIN'S LYMPHOMA
     Dates: start: 20021201, end: 20030301

REACTIONS (1)
  - ACUTE MYELOID LEUKAEMIA [None]
